FAERS Safety Report 24227220 (Version 1)
Quarter: 2024Q3

REPORT INFORMATION
  Report Type: Spontaneous
  Country: AT (occurrence: AT)
  Receive Date: 20240820
  Receipt Date: 20240820
  Transmission Date: 20241017
  Serious: Yes (Other)
  Sender: MYLAN
  Company Number: AT-MYLANLABS-2024M1076816

PATIENT
  Age: 82 Year
  Sex: Female

DRUGS (19)
  1. DULOXETINE [Suspect]
     Active Substance: DULOXETINE
     Indication: Adjustment disorder with depressed mood
     Dosage: UNK UNK, QD [30 TO 60MG PER DAY]
     Route: 065
  2. PREGABALIN [Suspect]
     Active Substance: PREGABALIN
     Indication: Bruxism
     Dosage: UNK
     Route: 065
  3. PREGABALIN [Suspect]
     Active Substance: PREGABALIN
     Indication: Tardive dyskinesia
  4. PREGABALIN [Suspect]
     Active Substance: PREGABALIN
     Indication: Dyskinesia
  5. PREGABALIN [Suspect]
     Active Substance: PREGABALIN
     Indication: Dysphagia
  6. AMANTADINE [Concomitant]
     Active Substance: AMANTADINE
     Indication: Bruxism
     Dosage: UNK
     Route: 065
  7. AMANTADINE [Concomitant]
     Active Substance: AMANTADINE
     Indication: Tardive dyskinesia
  8. AMANTADINE [Concomitant]
     Active Substance: AMANTADINE
     Indication: Dysphagia
  9. AMANTADINE [Concomitant]
     Active Substance: AMANTADINE
     Indication: Dyskinesia
  10. BIPERIDEN [Concomitant]
     Active Substance: BIPERIDEN
     Indication: Bruxism
     Dosage: UNK
     Route: 065
  11. BIPERIDEN [Concomitant]
     Active Substance: BIPERIDEN
     Indication: Tardive dyskinesia
  12. BIPERIDEN [Concomitant]
     Active Substance: BIPERIDEN
     Indication: Dysphagia
  13. BIPERIDEN [Concomitant]
     Active Substance: BIPERIDEN
     Indication: Dyskinesia
  14. TELMISARTAN [Concomitant]
     Active Substance: TELMISARTAN
     Indication: Hypertension
     Dosage: UNK
     Route: 065
  15. APIXABAN [Concomitant]
     Active Substance: APIXABAN
     Indication: Product used for unknown indication
     Dosage: UNK
     Route: 065
  16. LEVOTHYROXINE [Concomitant]
     Active Substance: LEVOTHYROXINE\LEVOTHYROXINE SODIUM
     Indication: Hypothyroidism
     Dosage: UNK
     Route: 065
  17. DAPAGLIFLOZIN [Concomitant]
     Active Substance: DAPAGLIFLOZIN
     Indication: Hypertension
     Dosage: UNK
     Route: 065
  18. ROSUVASTATIN [Concomitant]
     Active Substance: ROSUVASTATIN\ROSUVASTATIN CALCIUM
     Indication: Hyperlipidaemia
     Dosage: UNK
     Route: 065
  19. DENOSUMAB [Concomitant]
     Active Substance: DENOSUMAB
     Indication: Osteoporosis
     Dosage: UNK
     Route: 065

REACTIONS (9)
  - Dyskinesia [Recovering/Resolving]
  - Tardive dyskinesia [Recovering/Resolving]
  - Weight decreased [Recovering/Resolving]
  - Pneumonia [Unknown]
  - Aspiration [Unknown]
  - Drug ineffective for unapproved indication [Unknown]
  - Bruxism [Recovered/Resolved]
  - Dysphagia [Recovering/Resolving]
  - Off label use [Unknown]
